FAERS Safety Report 7860435-1 (Version None)
Quarter: 2011Q4

REPORT INFORMATION
  Report Type: 
  Country: None (occurrence: None)
  Receive Date: 20111027
  Receipt Date: 20111020
  Transmission Date: 20120403
  Serious: Yes (Other)
  Sender: FDA-Public Use
  Company Number: PHHY2011US52929

PATIENT
  Sex: Female

DRUGS (4)
  1. GILENYA [Suspect]
     Indication: RELAPSING-REMITTING MULTIPLE SCLEROSIS
     Dosage: 0.5 MG, DAILY
     Route: 048
     Dates: start: 20110609, end: 20111015
  2. CLONAZEPAM [Concomitant]
     Indication: MUSCLE SPASMS
     Dosage: 1 MG, UNK
  3. ZANAFLEX [Concomitant]
     Indication: MUSCLE SPASMS
     Dosage: 4 MG, QHS
  4. LAMICTAL [Concomitant]
     Indication: DEPRESSION
     Dosage: 150 MG, QD

REACTIONS (18)
  - VAGINAL HAEMORRHAGE [None]
  - VISION BLURRED [None]
  - MUSCLE SPASMS [None]
  - HYPOTENSION [None]
  - DYSPNOEA [None]
  - CONFUSIONAL STATE [None]
  - ASTHENIA [None]
  - COORDINATION ABNORMAL [None]
  - VAGINAL DISORDER [None]
  - DEHYDRATION [None]
  - MOOD SWINGS [None]
  - DIZZINESS [None]
  - FATIGUE [None]
  - CHILLS [None]
  - MULTIPLE SCLEROSIS RELAPSE [None]
  - DISORIENTATION [None]
  - PERONEAL NERVE PALSY [None]
  - DYSARTHRIA [None]
